FAERS Safety Report 6220678-X (Version None)
Quarter: 2009Q2

REPORT INFORMATION
  Report Type: 
  Country: None (occurrence: None)
  Receive Date: 20090610
  Receipt Date: 20090601
  Transmission Date: 20091009
  Serious: Yes (Hospitalization)
  Sender: FDA-Public Use
  Company Number: IT-ASTRAZENECA-2009SE02061

PATIENT
  Age: 2943 Day
  Sex: Female

DRUGS (1)
  1. MEROPENEM [Suspect]
     Indication: CYSTIC FIBROSIS
     Route: 042
     Dates: start: 20090526, end: 20090526

REACTIONS (2)
  - PYREXIA [None]
  - VOMITING [None]
